FAERS Safety Report 9706812 (Version 1)
Quarter: 2013Q4

REPORT INFORMATION
  Report Type: Spontaneous
  Country: FR (occurrence: FR)
  Receive Date: 20131125
  Receipt Date: 20131125
  Transmission Date: 20140711
  Serious: Yes (Hospitalization)
  Sender: FDA-Public Use
  Company Number: PHHY2013FR133581

PATIENT
  Age: 69 Year
  Sex: Female

DRUGS (4)
  1. FEMARA [Suspect]
     Indication: INVASIVE DUCTAL BREAST CARCINOMA
     Dosage: UNK UKN, QD
     Route: 048
     Dates: start: 200908, end: 20131106
  2. ACTONEL [Concomitant]
     Indication: OSTEOPOROSIS
     Dosage: UNK UKN, UNK
  3. INEXIUM//ESOMEPRAZOLE MAGNESIUM [Concomitant]
     Indication: GASTROOESOPHAGEAL REFLUX DISEASE
     Dosage: UNK UKN, UNK
  4. GAVISCON                                /GFR/ [Concomitant]
     Indication: GASTROOESOPHAGEAL REFLUX DISEASE
     Dosage: UNK UKN, UNK

REACTIONS (1)
  - Colitis ischaemic [Recovered/Resolved]
